FAERS Safety Report 6882629-4 (Version None)
Quarter: 2010Q3

REPORT INFORMATION
  Report Type: 
  Country: None (occurrence: None)
  Receive Date: 20100729
  Receipt Date: 20100715
  Transmission Date: 20110219
  Serious: Yes (Hospitalization)
  Sender: FDA-Public Use
  Company Number: RS-ROCHE-711734

PATIENT
  Age: 37 Year
  Sex: Female

DRUGS (3)
  1. PEG-INTRON [Suspect]
     Route: 065
     Dates: start: 20051101, end: 20060401
  2. PEG-INTRON [Suspect]
     Route: 065
  3. RIBAVIRIN [Suspect]
     Route: 065
     Dates: start: 20051101

REACTIONS (1)
  - IDIOPATHIC THROMBOCYTOPENIC PURPURA [None]
